FAERS Safety Report 17000878 (Version 6)
Quarter: 2020Q1

REPORT INFORMATION
  Report Type: Spontaneous
  Country: US (occurrence: US)
  Receive Date: 20191106
  Receipt Date: 20200226
  Transmission Date: 20200409
  Serious: No
  Sender: FDA-Public Use
  Company Number: US-SA-2019SA300258

PATIENT
  Age: 55 Year
  Sex: Female
  Weight: 54 kg

DRUGS (7)
  1. DUPIXENT [Suspect]
     Active Substance: DUPILUMAB
     Indication: NASAL POLYPS
     Dosage: 300 MG, QOW
     Route: 058
     Dates: start: 20191004
  2. ESTRING [Concomitant]
     Active Substance: ESTRADIOL
  3. ATIVAN [Concomitant]
     Active Substance: LORAZEPAM
  4. DUPIXENT [Suspect]
     Active Substance: DUPILUMAB
     Dosage: 200 MG, QOW
     Route: 058
  5. SYNTHROID [Concomitant]
     Active Substance: LEVOTHYROXINE SODIUM
  6. NEURONTIN [Concomitant]
     Active Substance: GABAPENTIN
  7. BREO ELLIPTA [Concomitant]
     Active Substance: FLUTICASONE FUROATE\VILANTEROL TRIFENATATE

REACTIONS (8)
  - Nasopharyngitis [Unknown]
  - Respiratory tract irritation [Unknown]
  - Myalgia [Unknown]
  - Wheezing [Unknown]
  - Off label use [Unknown]
  - Eye swelling [Unknown]
  - Arthralgia [Unknown]
  - Cough [Unknown]

NARRATIVE: CASE EVENT DATE: 2019
